FAERS Safety Report 25525615 (Version 1)
Quarter: 2025Q3

REPORT INFORMATION
  Report Type: Spontaneous
  Country: KR (occurrence: KR)
  Receive Date: 20250707
  Receipt Date: 20250707
  Transmission Date: 20251020
  Serious: Yes (Other)
  Sender: SANOFI AVENTIS
  Company Number: KR-ASTELLAS-2023US004859

PATIENT
  Age: 89 Year
  Sex: Male

DRUGS (3)
  1. HARNAL [Suspect]
     Active Substance: TAMSULOSIN HYDROCHLORIDE
     Indication: Prostate cancer
     Dosage: 0.4 MG, QD (0.4 MG, ONCE DAILY (2 TABLETS ONCE DAILY AFTER DINNER BETWEEN 9 AND 10PM)
     Route: 065
     Dates: start: 202106
  2. MIRABEGRON [Concomitant]
     Active Substance: MIRABEGRON
     Indication: Prostate cancer
     Dosage: 50 MG, ONCE DAILY (AFTER BREAKFAST, IN MORNING, ONGOING)
     Route: 065
  3. CASODEX [Concomitant]
     Active Substance: BICALUTAMIDE
     Indication: Prostate cancer
     Route: 065

REACTIONS (11)
  - Haematochezia [Unknown]
  - Fall [Unknown]
  - Weight increased [Unknown]
  - Constipation [Unknown]
  - Lip blister [Unknown]
  - COVID-19 [Unknown]
  - Wound haemorrhage [Unknown]
  - Head injury [Unknown]
  - Orthostatic hypotension [Unknown]
  - Dizziness [Unknown]
  - Off label use [Unknown]
